FAERS Safety Report 16187954 (Version 2)
Quarter: 2025Q1

REPORT INFORMATION
  Report Type: Spontaneous
  Country: IT (occurrence: IT)
  Receive Date: 20190412
  Receipt Date: 20250327
  Transmission Date: 20250408
  Serious: No
  Sender: ALKEM
  Company Number: None

PATIENT
  Age: 74 Year
  Sex: Female

DRUGS (6)
  1. QUETIAPINE FUMARATE [Suspect]
     Active Substance: QUETIAPINE FUMARATE
     Indication: Abnormal behaviour
     Route: 065
  2. TRAZODONE [Suspect]
     Active Substance: TRAZODONE HYDROCHLORIDE
     Indication: Abnormal behaviour
     Route: 065
  3. CHLORPROMAZINE [Suspect]
     Active Substance: CHLORPROMAZINE
     Indication: Abnormal behaviour
     Route: 065
  4. HALOPERIDOL [Suspect]
     Active Substance: HALOPERIDOL
     Indication: Abnormal behaviour
     Route: 065
  5. SERTRALINE [Suspect]
     Active Substance: SERTRALINE HYDROCHLORIDE
     Indication: Abnormal behaviour
     Route: 065
  6. VALPROIC ACID [Suspect]
     Active Substance: VALPROIC ACID
     Indication: Abnormal behaviour
     Route: 065

REACTIONS (6)
  - Adverse drug reaction [Unknown]
  - Hypersomnia [Unknown]
  - Parkinsonism [Unknown]
  - Confusional state [Unknown]
  - Condition aggravated [Unknown]
  - Drug ineffective [Unknown]
